FAERS Safety Report 9011588 (Version 3)
Quarter: 2013Q3

REPORT INFORMATION
  Report Type: Report from Study
  Country: US (occurrence: US)
  Receive Date: 20130108
  Receipt Date: 20130809
  Transmission Date: 20140515
  Serious: Yes (Death, Hospitalization)
  Sender: FDA-Public Use
  Company Number: US-SANOFI-AVENTIS-2013SA000423

PATIENT
  Age: 84 Year
  Sex: Female

DRUGS (6)
  1. DOCETAXEL [Suspect]
     Indication: BLADDER CANCER
     Route: 041
     Dates: start: 20121128, end: 20121128
  2. LOSARTAN [Concomitant]
     Route: 065
     Dates: start: 2006
  3. ATORVASTATIN CALCIUM [Concomitant]
     Route: 065
     Dates: start: 2006
  4. OXYCODONE [Concomitant]
     Route: 065
     Dates: start: 2006
  5. NAPROXEN SODIUM [Concomitant]
     Route: 065
     Dates: start: 2010
  6. TYLENOL [Concomitant]
     Route: 065
     Dates: start: 2006

REACTIONS (3)
  - Hypoxia [Fatal]
  - Hypotension [Fatal]
  - Neutropenia [Fatal]
